FAERS Safety Report 24727754 (Version 1)
Quarter: 2024Q4

REPORT INFORMATION
  Report Type: Spontaneous
  Country: US (occurrence: None)
  Receive Date: 20241212
  Receipt Date: 20241212
  Transmission Date: 20250114
  Serious: Yes (Hospitalization)
  Sender: Public
  Company Number: None

PATIENT
  Age: 95 Year
  Sex: Male
  Weight: 61 kg

DRUGS (1)
  1. ERYTHROMYCIN [Suspect]
     Active Substance: ERYTHROMYCIN
     Indication: Blepharitis
     Route: 047
     Dates: start: 20240722, end: 20240725

REACTIONS (3)
  - Vision blurred [None]
  - Conjunctival oedema [None]
  - Periorbital swelling [None]

NARRATIVE: CASE EVENT DATE: 20240722
